FAERS Safety Report 8029347-7 (Version None)
Quarter: 2012Q1

REPORT INFORMATION
  Report Type: 
  Country: None (occurrence: None)
  Receive Date: 20120106
  Receipt Date: 20120101
  Transmission Date: 20120608
  Serious: Yes (Death, Other)
  Sender: FDA-Public Use
  Company Number: US-CELGENEUS-163-21880-12010251

PATIENT
  Sex: Male

DRUGS (8)
  1. REVLIMID [Suspect]
     Dosage: 10 MILLIGRAM
     Route: 048
  2. REVLIMID [Suspect]
     Dosage: 20 MILLIGRAM
     Route: 048
  3. REVLIMID [Suspect]
     Dosage: 5 MILLIGRAM
     Route: 048
  4. REVLIMID [Suspect]
     Dosage: 5 MILLIGRAM
     Route: 048
  5. REVLIMID [Suspect]
     Dosage: 15 MILLIGRAM
     Route: 048
  6. BENDAMUSTINE [Suspect]
     Dosage: 90 MILLIGRAM/SQ. METER
     Route: 041
  7. ALLOPURINOL [Concomitant]
     Indication: PROPHYLAXIS
     Route: 065
  8. REVLIMID [Suspect]
     Dosage: 5 MILLIGRAM
     Route: 048

REACTIONS (4)
  - RASH [None]
  - SEPTIC SHOCK [None]
  - NEUTROPENIA [None]
  - THROMBOCYTOPENIA [None]
